FAERS Safety Report 18158560 (Version 2)
Quarter: 2020Q3

REPORT INFORMATION
  Report Type: Report from Study
  Country: US (occurrence: US)
  Receive Date: 20200817
  Receipt Date: 20200901
  Transmission Date: 20201103
  Serious: Yes (Hospitalization)
  Sender: FDA-Public Use
  Company Number: US-JNJFOC-20200811536

PATIENT
  Age: 54 Year
  Sex: Female

DRUGS (11)
  1. SPRAVATO [Suspect]
     Active Substance: ESKETAMINE
     Dates: start: 20200731, end: 20200731
  2. SPRAVATO [Suspect]
     Active Substance: ESKETAMINE
     Dates: start: 20200723, end: 20200723
  3. KLONOPIN [Concomitant]
     Active Substance: CLONAZEPAM
  4. SPRAVATO [Suspect]
     Active Substance: ESKETAMINE
     Dates: start: 20200720, end: 20200720
  5. SPRAVATO [Suspect]
     Active Substance: ESKETAMINE
     Indication: DEPRESSION
     Dates: start: 20200706, end: 20200706
  6. SPRAVATO [Suspect]
     Active Substance: ESKETAMINE
     Dates: start: 20200806, end: 20200806
  7. SPRAVATO [Suspect]
     Active Substance: ESKETAMINE
     Dosage: 84 MG; TOTAL 2 DOSES
     Dates: start: 20200803, end: 20200806
  8. SPRAVATO [Suspect]
     Active Substance: ESKETAMINE
     Dosage: 56 MG; TOTAL 2 DOSES
     Dates: start: 20200813, end: 20200819
  9. CLOMIPRAMINE [Concomitant]
     Active Substance: CLOMIPRAMINE
  10. LATUDA [Concomitant]
     Active Substance: LURASIDONE HYDROCHLORIDE
  11. SPRAVATO [Suspect]
     Active Substance: ESKETAMINE
     Dates: start: 20200728, end: 20200728

REACTIONS (6)
  - Dissociation [Recovered/Resolved]
  - Panic reaction [Unknown]
  - Obsessive-compulsive disorder [Unknown]
  - Suicidal ideation [Unknown]
  - Crying [Unknown]
  - Depression [Unknown]

NARRATIVE: CASE EVENT DATE: 20200806
